FAERS Safety Report 9197312 (Version 2)
Quarter: 2013Q2

REPORT INFORMATION
  Report Type: Spontaneous
  Country: US (occurrence: None)
  Receive Date: 20120709
  Receipt Date: 20121107
  Transmission Date: 20140414
  Serious: Yes (Other)
  Sender: FDA-Public Use
  Company Number: 2012HGS-003517

PATIENT
  Age: 37 Year
  Sex: Female
  Weight: 65.77 kg

DRUGS (4)
  1. BENLYSTA [Suspect]
     Indication: SYSTEMIC LUPUS ERYTHEMATOSUS
     Dosage: 1 IN 28 D, INTRAVENOUS DRIP
     Route: 041
  2. PLAQUENIL (HYDROXYCHLOROQUINE PHOSPHATE) (HYDROXYCHLOROQUINE PHOSPHATE) [Concomitant]
  3. NIFEDICAL (NIFEDIPINE) (NIFEDIPINE) [Concomitant]
  4. TREXIMET (NAPROXEN SODIUM/SUMATRIPTAN SUCCINATE) (NAPROXEN SODIUM, SUMATRIPTAN SUCCINATE) [Concomitant]

REACTIONS (4)
  - Vomiting [None]
  - White blood cell count increased [None]
  - Nausea [None]
  - Diarrhoea [None]
